FAERS Safety Report 5017294-4 (Version None)
Quarter: 2006Q2

REPORT INFORMATION
  Report Type: 
  Country: None (occurrence: None)
  Receive Date: 20060414
  Receipt Date: 20060214
  Transmission Date: 20061013
  Serious: No
  Sender: FDA-Public Use
  Company Number: 2006SP000811

PATIENT
  Age: 60 Year
  Sex: Female
  Weight: 56.6996 kg

DRUGS (13)
  1. LUNESTA [Suspect]
     Indication: INSOMNIA
     Dosage: 3 MG;HS;ORAL
     Route: 048
     Dates: start: 20050809, end: 20050901
  2. ATENOLOL [Concomitant]
  3. HYDROCHLOROTHIAZIDE [Concomitant]
  4. ACCUPRIL [Concomitant]
  5. LOVASTATIN [Concomitant]
  6. SYNTHROID [Concomitant]
  7. SULFASALAZINE [Concomitant]
  8. FOLIC ACID [Concomitant]
  9. DIPHENOXYLATE [Concomitant]
  10. DETROL [Concomitant]
  11. NEURONTIN [Concomitant]
  12. ANASTROZOLE [Concomitant]
  13. CLONAZEPAM [Concomitant]

REACTIONS (1)
  - INSOMNIA [None]
